FAERS Safety Report 25759955 (Version 1)
Quarter: 2025Q3

REPORT INFORMATION
  Report Type: Spontaneous
  Country: KR (occurrence: KR)
  Receive Date: 20250904
  Receipt Date: 20250904
  Transmission Date: 20251021
  Serious: Yes (Other)
  Sender: ALEXION PHARMACEUTICALS
  Company Number: KR-AstraZeneca-CH-00824541A

PATIENT
  Sex: Male

DRUGS (18)
  1. DURVALUMAB [Suspect]
     Active Substance: DURVALUMAB
     Route: 065
  2. DURVALUMAB [Suspect]
     Active Substance: DURVALUMAB
     Route: 065
  3. DURVALUMAB [Suspect]
     Active Substance: DURVALUMAB
     Route: 065
  4. DURVALUMAB [Suspect]
     Active Substance: DURVALUMAB
     Route: 065
  5. DURVALUMAB [Suspect]
     Active Substance: DURVALUMAB
     Route: 065
  6. DURVALUMAB [Suspect]
     Active Substance: DURVALUMAB
     Route: 065
  7. GEMCITABINE [Concomitant]
     Active Substance: GEMCITABINE
     Route: 065
  8. GEMCITABINE [Concomitant]
     Active Substance: GEMCITABINE
     Route: 065
  9. GEMCITABINE [Concomitant]
     Active Substance: GEMCITABINE
     Route: 065
  10. GEMCITABINE [Concomitant]
     Active Substance: GEMCITABINE
     Route: 065
  11. GEMCITABINE [Concomitant]
     Active Substance: GEMCITABINE
     Route: 065
  12. GEMCITABINE [Concomitant]
     Active Substance: GEMCITABINE
     Route: 065
  13. CISPLATIN [Concomitant]
     Active Substance: CISPLATIN
     Route: 065
  14. CISPLATIN [Concomitant]
     Active Substance: CISPLATIN
     Route: 065
  15. CISPLATIN [Concomitant]
     Active Substance: CISPLATIN
     Route: 065
  16. CISPLATIN [Concomitant]
     Active Substance: CISPLATIN
     Route: 065
  17. CISPLATIN [Concomitant]
     Active Substance: CISPLATIN
     Route: 065
  18. CISPLATIN [Concomitant]
     Active Substance: CISPLATIN
     Route: 065

REACTIONS (2)
  - Pyrexia [Unknown]
  - Metastases to liver [Unknown]

NARRATIVE: CASE EVENT DATE: 20250201
